FAERS Safety Report 5092486-7 (Version None)
Quarter: 2006Q3

REPORT INFORMATION
  Report Type: 
  Country: None (occurrence: None)
  Receive Date: 20060828
  Receipt Date: 20060814
  Transmission Date: 20061208
  Serious: Yes (Hospitalization, Other)
  Sender: FDA-Public Use
  Company Number: 2006101380

PATIENT
  Sex: Female

DRUGS (3)
  1. CELEBREX [Suspect]
     Indication: DRUG USE FOR UNKNOWN INDICATION
     Dates: start: 20010601, end: 20020215
  2. VALDECOXIB [Suspect]
     Indication: DRUG USE FOR UNKNOWN INDICATION
     Dates: start: 20020701
  3. VIOXX [Suspect]
     Indication: DRUG USE FOR UNKNOWN INDICATION
     Dosage: OPHTHALMIC
     Route: 047
     Dates: start: 20020215

REACTIONS (1)
  - CEREBROVASCULAR ACCIDENT [None]
